FAERS Safety Report 10743659 (Version 1)
Quarter: 2015Q1

REPORT INFORMATION
  Report Type: Spontaneous
  Country: US (occurrence: US)
  Receive Date: 20150128
  Receipt Date: 20150128
  Transmission Date: 20150721
  Serious: No
  Sender: FDA-Public Use
  Company Number: US-TEVA-512097USA

PATIENT
  Sex: Female

DRUGS (1)
  1. PROPOFOL. [Suspect]
     Active Substance: PROPOFOL
     Route: 065

REACTIONS (3)
  - Palpitations [Unknown]
  - Feeling jittery [Unknown]
  - Nausea [Unknown]
